FAERS Safety Report 21835159 (Version 1)
Quarter: 2023Q1

REPORT INFORMATION
  Report Type: Report from Study
  Country: DE (occurrence: DE)
  Receive Date: 20230109
  Receipt Date: 20230109
  Transmission Date: 20230417
  Serious: Yes (Hospitalization)
  Sender: FDA-Public Use
  Company Number: DE-ABBVIE-22K-062-4333346-00

PATIENT
  Sex: Female

DRUGS (1)
  1. SKYRIZI [Suspect]
     Active Substance: RISANKIZUMAB-RZAA
     Indication: Psoriasis
     Route: 058
     Dates: start: 202011

REACTIONS (7)
  - Ligament sprain [Unknown]
  - Suspected COVID-19 [Recovered/Resolved]
  - Malaise [Recovered/Resolved]
  - Decreased appetite [Not Recovered/Not Resolved]
  - Rehabilitation therapy [Recovered/Resolved]
  - Illness [Not Recovered/Not Resolved]
  - Fall [Recovered/Resolved]

NARRATIVE: CASE EVENT DATE: 20220101
